FAERS Safety Report 11147430 (Version 1)
Quarter: 2015Q2

REPORT INFORMATION
  Report Type: Report from Study
  Country: VE (occurrence: VE)
  Receive Date: 20150529
  Receipt Date: 20150529
  Transmission Date: 20150821
  Serious: Yes (Hospitalization)
  Sender: FDA-Public Use
  Company Number: VE-ROCHE-1585073

PATIENT
  Sex: Female
  Weight: 80 kg

DRUGS (1)
  1. PEG-INTERFERON ALFA 2A [Suspect]
     Active Substance: PEGINTERFERON ALFA-2A
     Indication: HEPATITIS C
     Route: 058

REACTIONS (1)
  - Deep vein thrombosis [Unknown]
